FAERS Safety Report 21308345 (Version 2)
Quarter: 2022Q3

REPORT INFORMATION
  Report Type: Report from Study
  Country: BD (occurrence: BD)
  Receive Date: 20220908
  Receipt Date: 20220913
  Transmission Date: 20221027
  Serious: Yes (Death)
  Sender: FDA-Public Use
  Company Number: BD-NOVARTISPH-NVSC2022BD203004

PATIENT
  Age: 70 Year
  Sex: Female
  Weight: 58 kg

DRUGS (2)
  1. ACLASTA [Suspect]
     Active Substance: ZOLEDRONIC ACID
     Indication: Osteoporosis
     Dosage: 1 DOSAGE FORM, Q12MO
     Route: 042
     Dates: start: 2019
  2. ACLASTA [Suspect]
     Active Substance: ZOLEDRONIC ACID
     Dosage: 1 DOSAGE FORM
     Route: 065
     Dates: start: 2021

REACTIONS (1)
  - Cerebrovascular accident [Fatal]

NARRATIVE: CASE EVENT DATE: 20220324
